FAERS Safety Report 11718528 (Version 2)
Quarter: 2015Q4

REPORT INFORMATION
  Report Type: Report from Study
  Country: JP (occurrence: JP)
  Receive Date: 20151110
  Receipt Date: 20151229
  Transmission Date: 20160304
  Serious: Yes (Other)
  Sender: FDA-Public Use
  Company Number: JP-VIFOR (INTERNATIONAL) INC.-VIT-2015-03062

PATIENT
  Age: 78 Year
  Sex: Female

DRUGS (14)
  1. MIRCERA [Suspect]
     Active Substance: METHOXY POLYETHYLENE GLYCOL-EPOETIN BETA
     Indication: NEPHROGENIC ANAEMIA
     Route: 058
     Dates: start: 20150408, end: 20150603
  2. ALLOPURINOL. [Concomitant]
     Active Substance: ALLOPURINOL
     Indication: NEPHROSCLEROSIS
     Route: 048
  3. FUROSEMIDE. [Concomitant]
     Active Substance: FUROSEMIDE
     Route: 048
  4. MIRCERA [Suspect]
     Active Substance: METHOXY POLYETHYLENE GLYCOL-EPOETIN BETA
     Route: 058
     Dates: start: 20150703
  5. BAYASPIRIN [Concomitant]
     Active Substance: ASPIRIN
     Route: 048
  6. MIRCERA [Suspect]
     Active Substance: METHOXY POLYETHYLENE GLYCOL-EPOETIN BETA
     Route: 058
     Dates: start: 20130705, end: 20150325
  7. NIRENA-L [Concomitant]
     Route: 048
  8. CARBON [Concomitant]
     Active Substance: ACTIVATED CHARCOAL
     Indication: NEPHROSCLEROSIS
     Route: 048
     Dates: start: 20140925
  9. PHARPRIL [Concomitant]
  10. ARGAMATE [Concomitant]
     Active Substance: CALCIUM POLYSTYRENE SULFONATE
     Indication: NEPHROSCLEROSIS
     Dates: start: 20140123
  11. FUROSEMIDE. [Concomitant]
     Active Substance: FUROSEMIDE
     Indication: NEPHROSCLEROSIS
     Route: 042
     Dates: start: 20150811, end: 20150825
  12. LACTEC D [Concomitant]
     Indication: NEPHROSCLEROSIS
     Route: 041
     Dates: start: 20150703, end: 20150818
  13. RIZE [Concomitant]
     Active Substance: CLOTIAZEPAM
     Route: 048
  14. BFLUID [Concomitant]
     Active Substance: AMINO ACIDS\DEXTROSE\ELECTROLYTES NOS\VITAMINS
     Indication: NEPHROSCLEROSIS
     Route: 042
     Dates: start: 20150603

REACTIONS (9)
  - Cardiac failure [Recovered/Resolved]
  - Cardiomegaly [Recovering/Resolving]
  - Mitral valve incompetence [Unknown]
  - Aortic valve incompetence [Unknown]
  - Left atrial dilatation [Unknown]
  - Bradycardia [Recovering/Resolving]
  - Hyperkalaemia [Unknown]
  - Pulmonary congestion [Recovering/Resolving]
  - Decreased appetite [Not Recovered/Not Resolved]

NARRATIVE: CASE EVENT DATE: 2013
